FAERS Safety Report 9268638 (Version 1)
Quarter: 2013Q2

REPORT INFORMATION
  Report Type: Spontaneous
  Country: FR (occurrence: FR)
  Receive Date: 20130502
  Receipt Date: 20130502
  Transmission Date: 20140414
  Serious: Yes (Other)
  Sender: FDA-Public Use
  Company Number: FR-B.I. PHARMACEUTICALS,INC./RIDGEFIELD-2013-BI-12447BY

PATIENT
  Age: 63 Year
  Sex: Male

DRUGS (2)
  1. PRITOR [Suspect]
     Dosage: UNKNOWN
     Route: 065
  2. CRESTOR [Concomitant]

REACTIONS (1)
  - Biliary cirrhosis primary [Unknown]
